FAERS Safety Report 20700998 (Version 1)
Quarter: 2022Q2

REPORT INFORMATION
  Report Type: Spontaneous
  Country: US (occurrence: US)
  Receive Date: 20220412
  Receipt Date: 20220412
  Transmission Date: 20220720
  Serious: Yes (Other)
  Sender: FDA-Public Use
  Company Number: US-ELI_LILLY_AND_COMPANY-US202204003084

PATIENT

DRUGS (8)
  1. EMGALITY [Suspect]
     Active Substance: GALCANEZUMAB-GNLM
     Indication: Migraine
     Dosage: UNK UNK, UNKNOWN
     Route: 065
  2. NURTEC ODT [Concomitant]
     Active Substance: RIMEGEPANT SULFATE
     Indication: Migraine
  3. MAXALT [Concomitant]
     Active Substance: RIZATRIPTAN BENZOATE
     Indication: Migraine
  4. TOPAMAX [Concomitant]
     Active Substance: TOPIRAMATE
     Indication: Migraine
  5. UBRELVY [Concomitant]
     Active Substance: UBROGEPANT
     Indication: Migraine
  6. NUCYNTA [Concomitant]
     Active Substance: TAPENTADOL HYDROCHLORIDE
     Indication: Pain
  7. OXYCODONE [Concomitant]
     Active Substance: OXYCODONE
     Indication: Pain
  8. ATENOLOL [Concomitant]
     Active Substance: ATENOLOL
     Indication: Product used for unknown indication

REACTIONS (3)
  - Loss of consciousness [Unknown]
  - Meniere^s disease [Unknown]
  - Vertigo [Unknown]
